FAERS Safety Report 5386831-2 (Version None)
Quarter: 2007Q3

REPORT INFORMATION
  Report Type: 
  Country: None (occurrence: None)
  Receive Date: 20070713
  Receipt Date: 20070706
  Transmission Date: 20080115
  Serious: Yes (Hospitalization)
  Sender: FDA-Public Use
  Company Number: JP-ROXANE LABORATORIES, INC-2007-BP-16846RO

PATIENT
  Age: 54 Year
  Sex: Female

DRUGS (2)
  1. METHOTREXATE [Suspect]
     Indication: RHEUMATOID ARTHRITIS
     Dosage: 7.5 MG WEEKLY
  2. BUCILLAMINE [Suspect]
     Indication: RHEUMATOID ARTHRITIS
     Dosage: 100 MG/DAY

REACTIONS (6)
  - ANGIOCENTRIC LYMPHOMA [None]
  - CHEST PAIN [None]
  - DIFFUSE LARGE B-CELL LYMPHOMA [None]
  - HEPATIC ENZYME INCREASED [None]
  - VASCULAR OCCLUSION [None]
  - VASCULITIS [None]
